FAERS Safety Report 9197459 (Version 1)
Quarter: 2013Q1

REPORT INFORMATION
  Report Type: Spontaneous
  Country: US (occurrence: None)
  Receive Date: 20120709
  Receipt Date: 20120709
  Transmission Date: 20140127
  Serious: No
  Sender: FDA-Public Use
  Company Number: PHHY2011US40816

PATIENT
  Age: 76 Year
  Sex: Female
  Weight: 52.6 kg

DRUGS (1)
  1. GLEEVEC [Suspect]
     Dosage: 03-MAY-2011   ONGOING
     Route: 048
     Dates: start: 20100909

REACTIONS (10)
  - Gastroenteritis viral [None]
  - Gastrointestinal toxicity [None]
  - Vomiting [None]
  - Influenza like illness [None]
  - Malaise [None]
  - Helicobacter infection [None]
  - Abdominal wall disorder [None]
  - Weight decreased [None]
  - Nausea [None]
  - Asthenia [None]
